FAERS Safety Report 18598390 (Version 5)
Quarter: 2022Q1

REPORT INFORMATION
  Report Type: Report from Study
  Country: JP (occurrence: JP)
  Receive Date: 20201210
  Receipt Date: 20220314
  Transmission Date: 20220423
  Serious: Yes (Other)
  Sender: FDA-Public Use
  Company Number: JP-CELLTRION INC.-2020JP024833

PATIENT

DRUGS (10)
  1. INFLIXIMAB-DYYB [Suspect]
     Active Substance: INFLIXIMAB-DYYB
     Indication: Crohn^s disease
     Dosage: 580 MG (WEIGHT: 58.4KG)
     Route: 041
     Dates: start: 20181111, end: 20181111
  2. INFLIXIMAB-DYYB [Suspect]
     Active Substance: INFLIXIMAB-DYYB
     Dosage: 580 MG (WEIGHT: 58KG)
     Route: 041
     Dates: start: 20190106, end: 20190106
  3. INFLIXIMAB-DYYB [Suspect]
     Active Substance: INFLIXIMAB-DYYB
     Dosage: 580 MG (WEIGHT: 58.5KG)
     Route: 041
     Dates: start: 20190303, end: 20190303
  4. INFLIXIMAB-DYYB [Suspect]
     Active Substance: INFLIXIMAB-DYYB
     Dosage: 570 MG (WEIGHT: 56.9KG)
     Route: 041
     Dates: start: 20190428, end: 20190428
  5. INFLIXIMAB-DYYB [Suspect]
     Active Substance: INFLIXIMAB-DYYB
     Dosage: 560 MG (WEIGHT: 56.0KG)
     Route: 041
     Dates: start: 20191015, end: 20191015
  6. INFLIXIMAB-DYYB [Suspect]
     Active Substance: INFLIXIMAB-DYYB
     Dosage: 550 MG (WEIGHT: 55.2KG)
     Route: 041
     Dates: start: 20201116, end: 20201116
  7. INFLIXIMAB-DYYB [Suspect]
     Active Substance: INFLIXIMAB-DYYB
     Dosage: 580 MG (WEIGHT: 58.1KG)
     Route: 041
     Dates: start: 20211109, end: 20211109
  8. AZATHIOPRINE [Concomitant]
     Active Substance: AZATHIOPRINE
     Dosage: 50 MILLIGRAM/DAY
     Route: 048
     Dates: start: 201203
  9. MESALAMINE [Concomitant]
     Active Substance: MESALAMINE
     Indication: Colitis ulcerative
     Dosage: 3000 MILLIGRAM/DAY
     Route: 048
     Dates: end: 20200718
  10. MESALAMINE [Concomitant]
     Active Substance: MESALAMINE
     Dosage: 2000 MILLIGRAM/DAY
     Route: 048
     Dates: start: 20200719

REACTIONS (14)
  - Intestinal obstruction [Recovered/Resolved]
  - Subileus [Recovered/Resolved]
  - Subileus [Unknown]
  - Hypozincaemia [Not Recovered/Not Resolved]
  - Anal fistula [Recovered/Resolved]
  - Stomatitis [Recovered/Resolved]
  - Vertigo [Recovered/Resolved]
  - Bronchitis [Recovered/Resolved]
  - Bacterial vulvovaginitis [Recovered/Resolved]
  - Tinea pedis [Not Recovered/Not Resolved]
  - Nasopharyngitis [Recovered/Resolved]
  - Oropharyngeal pain [Recovered/Resolved]
  - Off label use [Unknown]
  - Off label use [Unknown]

NARRATIVE: CASE EVENT DATE: 20190211
